FAERS Safety Report 6278218-5 (Version None)
Quarter: 2009Q3

REPORT INFORMATION
  Report Type: 
  Country: None (occurrence: None)
  Receive Date: 20090722
  Receipt Date: 20090716
  Transmission Date: 20100115
  Serious: Yes (Other)
  Sender: FDA-Public Use
  Company Number: US-ASTRAZENECA-2009UW13446

PATIENT
  Age: 39 Year
  Sex: Female
  Weight: 77.1 kg

DRUGS (13)
  1. SEROQUEL [Suspect]
     Indication: BIPOLAR DISORDER
     Dosage: 750 MG TO 1000 MG
     Route: 048
     Dates: start: 19970101
  2. RISPERDAL [Concomitant]
  3. ZYPREXA [Concomitant]
  4. ADIPEX [Concomitant]
  5. ABILIFY [Concomitant]
     Dates: start: 20070101
  6. GEODON [Concomitant]
     Dates: start: 20080101
  7. DEPAKOTE [Concomitant]
  8. LITHIUM [Concomitant]
  9. NOREPHRINE [Concomitant]
     Dates: start: 19860101
  10. TRILEPTAL [Concomitant]
     Dates: start: 20080101, end: 20090101
  11. NEURONTIN [Concomitant]
  12. AMBIEN [Concomitant]
     Dates: start: 20080101
  13. WELLBUTRIN [Concomitant]

REACTIONS (4)
  - HEPATITIS C [None]
  - LOSS OF CONSCIOUSNESS [None]
  - PANCREATITIS [None]
  - TARDIVE DYSKINESIA [None]
